FAERS Safety Report 7222790-5 (Version None)
Quarter: 2011Q1

REPORT INFORMATION
  Report Type: 
  Country: None (occurrence: None)
  Receive Date: 20110112
  Receipt Date: 20101228
  Transmission Date: 20110831
  Serious: No
  Sender: FDA-Public Use
  Company Number: US-B.I. PHARMACEUTICALS,INC./RIDGEFIELD-2011-BP-00324BP

PATIENT
  Sex: Male

DRUGS (2)
  1. FLOMAX [Concomitant]
     Indication: PROSTATIC DISORDER
  2. PRADAXA [Suspect]
     Indication: ANTICOAGULANT THERAPY
     Dosage: 300 MG
     Route: 048
     Dates: start: 20101218

REACTIONS (2)
  - DYSPEPSIA [None]
  - SALIVARY HYPERSECRETION [None]
